FAERS Safety Report 7572336-7 (Version None)
Quarter: 2011Q2

REPORT INFORMATION
  Report Type: 
  Country: None (occurrence: None)
  Receive Date: 20110624
  Receipt Date: 20110620
  Transmission Date: 20111010
  Serious: Yes (Death, Hospitalization)
  Sender: FDA-Public Use
  Company Number: PHHY2011CA06648

PATIENT
  Sex: Male

DRUGS (1)
  1. ZOMETA [Suspect]
     Indication: MULTIPLE MYELOMA
     Dosage: 4 MG, EVERY 4 WEEKS
     Route: 042
     Dates: start: 20100720

REACTIONS (2)
  - DEATH [None]
  - BLOOD COUNT ABNORMAL [None]
